FAERS Safety Report 7720740-6 (Version None)
Quarter: 2011Q3

REPORT INFORMATION
  Report Type: 
  Country: None (occurrence: None)
  Receive Date: 20110825
  Receipt Date: 20110804
  Transmission Date: 20111222
  Serious: Yes (Other)
  Sender: FDA-Public Use
  Company Number: 2011P1008144

PATIENT
  Age: 74 Year
  Sex: Female
  Weight: 52.6173 kg

DRUGS (9)
  1. ENALAPRIL MALEATE [Concomitant]
  2. GLUCOSAMINE CHONDROITIN [Concomitant]
  3. CALCIUM CARBONATE [Concomitant]
  4. HYDROCHLOROTHIAZIDE [Suspect]
     Indication: BLOOD PRESSURE INCREASED
     Dates: start: 20100901
  5. CULTURELLE PROBIOTIC [Concomitant]
  6. CRANBERRY PILL [Concomitant]
  7. HYDROCHLOROTHIAZIDE [Suspect]
     Indication: BLOOD PRESSURE INCREASED
     Dosage: 25 MG;QD;PO
     Route: 048
     Dates: end: 20110722
  8. HYDROCHLOROTHIAZIDE [Suspect]
     Indication: BLOOD PRESSURE INCREASED
     Dosage: 25 MG;QD;PO
     Route: 048
  9. MULTI-VITAMIN [Concomitant]

REACTIONS (4)
  - ELECTRIC SHOCK [None]
  - ROTATOR CUFF SYNDROME [None]
  - CATARACT [None]
  - VISUAL ACUITY REDUCED [None]
